FAERS Safety Report 10345039 (Version 1)
Quarter: 2014Q3

REPORT INFORMATION
  Report Type: Report from Study
  Country: US (occurrence: None)
  Receive Date: 20140724
  Receipt Date: 20140724
  Transmission Date: 20150326
  Serious: Yes (Death, Hospitalization)
  Sender: FDA-Public Use
  Company Number: SYM-2014-23373

PATIENT
  Age: 83 Year
  Sex: Female

DRUGS (13)
  1. ACIPHEX [Concomitant]
     Active Substance: RABEPRAZOLE SODIUM
  2. PRESERVISION (VITEYES) TABLET (ASCORBIC ACID, TOCOPHERYL ACETATE, ZINC OXIDE, CUPPRIC OXIDE, BETACAROTENE) [Concomitant]
  3. NOVOLOG [Concomitant]
     Active Substance: INSULIN ASPART
  4. LANTUS [Concomitant]
     Active Substance: INSULIN GLARGINE
  5. LEVOTHYROXINE (LEVOTHYROXINE) [Concomitant]
     Active Substance: LEVOTHYROXINE
  6. MACUGEN [Suspect]
     Active Substance: PEGAPTANIB SODIUM
     Indication: MACULAR DEGENERATION
     Route: 042
     Dates: start: 20131104, end: 20140606
  7. WARFARIN (WARFARIN) [Concomitant]
     Active Substance: WARFARIN
  8. TORASEMIDE (TABLET) [Concomitant]
  9. TRIMETHOPRIM (TRIMETHOPRIM) [Concomitant]
     Active Substance: TRIMETHOPRIM
  10. FLECAINIDE (FLECAINIDE) [Concomitant]
     Active Substance: FLECAINIDE
  11. SIMVASTATIN (SIMVASTATIN) [Concomitant]
     Active Substance: SIMVASTATIN
  12. GABAPENTIN (GABAPENTIN) [Concomitant]
     Active Substance: GABAPENTIN
  13. POTASSIUM CHLORIDE (POTASSIUM CHLORIDE) [Concomitant]
     Active Substance: POTASSIUM CHLORIDE

REACTIONS (1)
  - Pneumonia [None]

NARRATIVE: CASE EVENT DATE: 20140711
